FAERS Safety Report 7535318-7 (Version None)
Quarter: 2011Q2

REPORT INFORMATION
  Report Type: 
  Country: None (occurrence: None)
  Receive Date: 20110609
  Receipt Date: 20080303
  Transmission Date: 20111010
  Serious: Yes (Hospitalization, Other)
  Sender: FDA-Public Use
  Company Number: PHFR2007GB02093

PATIENT
  Sex: Female

DRUGS (11)
  1. RISPERIDONE [Concomitant]
     Dosage: UNK
     Route: 065
  2. CLOZAPINE [Suspect]
     Indication: SCHIZOPHRENIA
     Dosage: UNK
     Route: 048
     Dates: start: 20060206, end: 20070706
  3. FUROSEMIDE [Concomitant]
     Indication: HYPERTENSION
     Dosage: 40 MG, QD
     Route: 048
  4. LISINOPRIL [Concomitant]
     Dosage: UNK
     Route: 065
  5. SERTRALINE HYDROCHLORIDE [Concomitant]
     Indication: AFFECTIVE DISORDER
     Dosage: 100 MG, QD
     Route: 048
  6. GLICLAZIDE [Concomitant]
     Indication: DIABETES MELLITUS
     Dosage: 80 MG, QD
     Route: 048
  7. DEPO-PROVERA [Concomitant]
     Indication: CONTRACEPTION
     Dosage: UNK
     Route: 030
  8. SENNA-MINT WAF [Concomitant]
     Dosage: UNK
     Route: 065
  9. ATENOLOL [Concomitant]
     Indication: HYPERTENSION
     Dosage: 100 MG, QD
     Route: 048
  10. FERROUS FUMARATE [Concomitant]
     Dosage: UNK
     Route: 065
  11. SIMVASTATIN [Concomitant]
     Dosage: UNK
     Route: 065

REACTIONS (3)
  - HAEMOGLOBIN DECREASED [None]
  - BLOOD PRESSURE DECREASED [None]
  - ABSCESS [None]
